FAERS Safety Report 14831813 (Version 3)
Quarter: 2018Q3

REPORT INFORMATION
  Report Type: Spontaneous
  Country: DE (occurrence: DE)
  Receive Date: 20180501
  Receipt Date: 20180806
  Transmission Date: 20181010
  Serious: Yes (Death, Hospitalization, Other)
  Sender: FDA-Public Use
  Company Number: DE-ACCORD-066276

PATIENT
  Age: 67 Year
  Sex: Male
  Weight: 98 kg

DRUGS (12)
  1. ALLOPURINOL. [Concomitant]
     Active Substance: ALLOPURINOL
     Dosage: IF REQUIRED
     Route: 048
  2. LOSARGAMMA [Concomitant]
     Dosage: STRENGTH: 50 MG
     Route: 048
     Dates: end: 20170429
  3. ENTRESTO [Suspect]
     Active Substance: SACUBITRIL\VALSARTAN
     Indication: CARDIAC FAILURE
     Dosage: 2 DF DOSAGE FORM EVERY DAY (2X24/26 MG)?STRENGTH: 24 MG/26 MG
     Route: 048
     Dates: start: 20170425
  4. TOREM [Suspect]
     Active Substance: TORSEMIDE
     Indication: CARDIAC FAILURE
     Dosage: DAILY DOSE: 20 MG MILLGRAM(S) EVERY DAYS
     Route: 048
  5. METFORMIN 850 ?1A PHARMA [Concomitant]
     Indication: DIABETES MELLITUS
     Dosage: 1700 MG EVERY DAY
     Route: 048
  6. ELIQUIS [Concomitant]
     Active Substance: APIXABAN
     Indication: ATRIAL FIBRILLATION
     Dosage: DAILY DOSE: 10 MG EVERY DAY
     Route: 048
  7. SPIRONOLACTONE. [Concomitant]
     Active Substance: SPIRONOLACTONE
     Route: 048
  8. ISMN 40 HEUMANN [Concomitant]
     Indication: ANGINA PECTORIS
     Dosage: 40 MG EVERY DAYS
     Route: 048
  9. SPIRONOLACTONE. [Suspect]
     Active Substance: SPIRONOLACTONE
     Indication: CARDIAC FAILURE
     Route: 048
  10. NOVODIGAL [Concomitant]
     Indication: ATRIAL FIBRILLATION
     Dosage: STRENGTH: 0.2 MG
     Route: 048
  11. INEGY [Concomitant]
     Active Substance: EZETIMIBE\SIMVASTATIN
     Indication: HYPERLIPIDAEMIA
     Dosage: STRENGTH: 10MG/40 MG
     Route: 048
  12. METOPROLOLSUCC BIOEQ 95 [Concomitant]
     Indication: ATRIAL FIBRILLATION
     Dosage: DAILY DOSE: 190 MG MILLGRAM(S) EVERY DAYS
     Route: 048

REACTIONS (17)
  - Syncope [Unknown]
  - Troponin I increased [Unknown]
  - Pallor [Unknown]
  - Acute myocardial infarction [Unknown]
  - General physical health deterioration [Unknown]
  - Nausea [Fatal]
  - Acute kidney injury [Fatal]
  - Oedema peripheral [Unknown]
  - Metabolic acidosis [Fatal]
  - Vomiting [Fatal]
  - Sudden cardiac death [Fatal]
  - Anuria [Fatal]
  - Mucosal dryness [Unknown]
  - Tachypnoea [Unknown]
  - Diarrhoea [Fatal]
  - Cardiac arrest [Fatal]
  - Orthopnoea [Unknown]

NARRATIVE: CASE EVENT DATE: 20170501
